FAERS Safety Report 20430185 (Version 1)
Quarter: 2022Q1

REPORT INFORMATION
  Report Type: Report from Study
  Country: US (occurrence: US)
  Receive Date: 20220204
  Receipt Date: 20220204
  Transmission Date: 20220424
  Serious: Yes (Hospitalization)
  Sender: FDA-Public Use
  Company Number: 2019IN011959

PATIENT

DRUGS (12)
  1. PEGASPARGASE [Suspect]
     Active Substance: PEGASPARGASE
     Indication: Acute lymphocytic leukaemia
     Dosage: 5100 IU ON DAYS 15
     Route: 042
     Dates: start: 20191028, end: 20191028
  2. PEGASPARGASE [Suspect]
     Active Substance: PEGASPARGASE
     Dosage: 5100 IU ON DAY 43
     Route: 042
     Dates: start: 20191125, end: 20191125
  3. METHOTREXATE [Suspect]
     Active Substance: METHOTREXATE
     Indication: Acute lymphocytic leukaemia
     Dosage: 15 MG ON DAYS 1 AND 8
     Route: 037
     Dates: start: 20191014, end: 20191211
  4. RUXOLITINIB PHOSPHATE [Suspect]
     Active Substance: RUXOLITINIB PHOSPHATE
     Indication: Acute lymphocytic leukaemia
     Dosage: 100 MG, BID
     Route: 048
     Dates: start: 20191015, end: 20191211
  5. MERCAPTOPURINE [Suspect]
     Active Substance: MERCAPTOPURINE
     Indication: Acute lymphocytic leukaemia
     Dosage: 100 MG, 2X A WEEK
     Route: 048
     Dates: start: 20191015, end: 20191211
  6. MERCAPTOPURINE [Suspect]
     Active Substance: MERCAPTOPURINE
     Dosage: 150 MG, 2X A WEEK
     Route: 048
     Dates: end: 20191124
  7. CYCLOPHOSPHAMIDE [Suspect]
     Active Substance: CYCLOPHOSPHAMIDE
     Indication: Acute lymphocytic leukaemia
     Dosage: 2020 MG, EVERY 4 WEEKS
     Route: 042
     Dates: start: 20191015, end: 20191111
  8. CYTARABINE [Suspect]
     Active Substance: CYTARABINE
     Indication: Acute lymphocytic leukaemia
     Dosage: 150 MG ON DAYS 1, 8, 29, 36
     Route: 042
     Dates: start: 20191015, end: 20191121
  9. VINCRISTINE SULFATE [Suspect]
     Active Substance: VINCRISTINE SULFATE
     Indication: Acute lymphocytic leukaemia
     Dosage: 2 MG ON DAYS 15, 22, 43 AND 50
     Route: 042
     Dates: start: 20191028, end: 20191211
  10. VANCOMYCIN [Concomitant]
     Active Substance: VANCOMYCIN
     Indication: Pneumonia
     Dosage: UNK
     Dates: start: 20191127, end: 20191203
  11. VORICONAZOLE [Concomitant]
     Active Substance: VORICONAZOLE
     Indication: Product used for unknown indication
     Dosage: UNK
     Dates: start: 20191203, end: 20191204
  12. AMBISOME [Concomitant]
     Active Substance: AMPHOTERICIN B
     Indication: Product used for unknown indication
     Dosage: UNK
     Dates: start: 20191130, end: 20191203

REACTIONS (6)
  - Device related bacteraemia [Recovered/Resolved]
  - Sepsis [Recovered/Resolved]
  - Febrile neutropenia [Recovered/Resolved]
  - Pancreatitis [Recovered/Resolved]
  - Lower respiratory tract infection fungal [Recovered/Resolved]
  - Acute kidney injury [Recovered/Resolved]

NARRATIVE: CASE EVENT DATE: 20191126
